FAERS Safety Report 25706027 (Version 1)
Quarter: 2025Q3

REPORT INFORMATION
  Report Type: Spontaneous
  Country: IN (occurrence: IN)
  Receive Date: 20250820
  Receipt Date: 20250820
  Transmission Date: 20251021
  Serious: Yes (Other)
  Sender: GLAND PHARMA LTD
  Company Number: IN-GLANDPHARMA-IN-2025GLNLIT01683

PATIENT
  Age: 6 Decade
  Sex: Male

DRUGS (6)
  1. MITOMYCIN [Suspect]
     Active Substance: MITOMYCIN
     Indication: Transitional cell carcinoma metastatic
     Route: 042
  2. CAPECITABINE [Suspect]
     Active Substance: CAPECITABINE
     Indication: Transitional cell carcinoma metastatic
     Route: 065
  3. GEMCITABINE [Concomitant]
     Active Substance: GEMCITABINE
     Route: 065
  4. CISPLATIN [Concomitant]
     Active Substance: CISPLATIN
     Route: 065
  5. PACLITAXEL [Concomitant]
     Active Substance: PACLITAXEL
     Route: 065
  6. CARBOPLATIN [Concomitant]
     Active Substance: CARBOPLATIN
     Route: 065

REACTIONS (3)
  - Gastrointestinal toxicity [Recovered/Resolved]
  - Urinary tract toxicity [Recovered/Resolved]
  - Product use in unapproved indication [Unknown]
